FAERS Safety Report 24944691 (Version 4)
Quarter: 2025Q1

REPORT INFORMATION
  Report Type: Report from Study
  Country: JP (occurrence: JP)
  Receive Date: 20250208
  Receipt Date: 20250320
  Transmission Date: 20250409
  Serious: Yes (Other)
  Sender: ALEXION PHARMACEUTICALS
  Company Number: JP-ASTRAZENECA-230015457_011820_P_1

PATIENT
  Age: 16 Year
  Weight: 50 kg

DRUGS (10)
  1. KOSELUGO [Suspect]
     Active Substance: SELUMETINIB
     Indication: Neurofibroma
     Dosage: 35 MILLIGRAM, BID
  2. KOSELUGO [Suspect]
     Active Substance: SELUMETINIB
     Dosage: 50 MILLIGRAM, QD
  3. KOSELUGO [Suspect]
     Active Substance: SELUMETINIB
     Dosage: 60 MILLIGRAM, QD
  4. KOSELUGO [Suspect]
     Active Substance: SELUMETINIB
  5. KOSELUGO [Suspect]
     Active Substance: SELUMETINIB
     Dosage: 40 MILLIGRAM, QD
  6. KOSELUGO [Suspect]
     Active Substance: SELUMETINIB
  7. KOSELUGO [Suspect]
     Active Substance: SELUMETINIB
  8. KOSELUGO [Suspect]
     Active Substance: SELUMETINIB
  9. KOSELUGO [Suspect]
     Active Substance: SELUMETINIB
  10. CLINDAMYCIN PHOSPHATE [Concomitant]
     Active Substance: CLINDAMYCIN PHOSPHATE
     Indication: Prophylaxis
     Route: 065

REACTIONS (4)
  - Dermatitis acneiform [Recovering/Resolving]
  - Blood creatine phosphokinase increased [Recovered/Resolved]
  - Paronychia [Recovering/Resolving]
  - Chalazion [Recovering/Resolving]
